FAERS Safety Report 20322913 (Version 1)
Quarter: 2022Q1

REPORT INFORMATION
  Report Type: Spontaneous
  Country: US (occurrence: US)
  Receive Date: 20220111
  Receipt Date: 20220111
  Transmission Date: 20220423
  Serious: No
  Sender: FDA-Public Use
  Company Number: US-PFIZER INC-2021509940

PATIENT
  Age: 68 Year
  Sex: Female
  Weight: 62.14 kg

DRUGS (1)
  1. CHANTIX [Suspect]
     Active Substance: VARENICLINE TARTRATE
     Indication: Smoking cessation therapy
     Dosage: 1 DF, 1X/DAY
     Route: 048
     Dates: start: 202104, end: 202105

REACTIONS (5)
  - Constipation [Recovering/Resolving]
  - Insomnia [Recovered/Resolved]
  - Fatigue [Unknown]
  - Abnormal behaviour [Recovered/Resolved]
  - Product prescribing error [Unknown]

NARRATIVE: CASE EVENT DATE: 20210401
